FAERS Safety Report 25227165 (Version 2)
Quarter: 2025Q3

REPORT INFORMATION
  Report Type: Report from Study
  Country: CA (occurrence: CA)
  Receive Date: 20250422
  Receipt Date: 20250809
  Transmission Date: 20251021
  Serious: Yes (Other)
  Sender: ALEXION PHARMACEUTICALS
  Company Number: CA-AstraZeneca-CH-00853096A

PATIENT
  Sex: Female

DRUGS (5)
  1. SOLIRIS [Suspect]
     Active Substance: ECULIZUMAB
     Indication: Paroxysmal nocturnal haemoglobinuria
     Dosage: 600 MILLIGRAM, QW
     Dates: start: 20091130, end: 20091228
  2. SOLIRIS [Suspect]
     Active Substance: ECULIZUMAB
     Dosage: 900 MILLIGRAM, Q2W
     Dates: start: 20100111
  3. MIRENA [Concomitant]
     Active Substance: LEVONORGESTREL
  4. EXJADE [Concomitant]
     Active Substance: DEFERASIROX
     Dosage: 500 MILLIGRAM, QW
  5. CYCLOSPORINE [Concomitant]
     Active Substance: CYCLOSPORINE
     Dosage: 100 MILLIGRAM, QD

REACTIONS (2)
  - Lung neoplasm malignant [Unknown]
  - Lymphoma [Unknown]
